FAERS Safety Report 5425579-2 (Version None)
Quarter: 2007Q3

REPORT INFORMATION
  Report Type: 
  Country: None (occurrence: None)
  Receive Date: 20070731
  Receipt Date: 20070404
  Transmission Date: 20080115
  Serious: No
  Sender: FDA-Public Use
  Company Number: US200704001245

PATIENT
  Age: 52 Year
  Sex: Male
  Weight: 108.8 kg

DRUGS (6)
  1. BYETTA [Suspect]
     Indication: TYPE 2 DIABETES MELLITUS
     Dosage: 5 UG, 2/D, SUBCUTANEOUS
     Route: 058
     Dates: start: 20070402
  2. EXENATIDE 5MCG PEN, DISPOSABLE DEVICE (EXENATIDE PEN (5 MCG))PEN, DISP [Concomitant]
  3. GLUCOVANCE [Concomitant]
  4. WELLBUTRIN [Concomitant]
  5. ALPRAZOLAM [Concomitant]
  6. ACCUPRIL [Concomitant]

REACTIONS (2)
  - MUSCLE SPASMS [None]
  - NAUSEA [None]
